FAERS Safety Report 7357602-2 (Version None)
Quarter: 2011Q1

REPORT INFORMATION
  Report Type: 
  Country: None (occurrence: None)
  Receive Date: 20110317
  Receipt Date: 20110307
  Transmission Date: 20110831
  Serious: Yes (Other)
  Sender: FDA-Public Use
  Company Number: IE-JNJFOC-20110303819

PATIENT
  Sex: Male

DRUGS (1)
  1. REMICADE [Suspect]
     Indication: PRODUCT USED FOR UNKNOWN INDICATION
     Dosage: MAINTENANCE TREATMENT X 10 YEARS
     Route: 042

REACTIONS (2)
  - HERPES ZOSTER OPHTHALMIC [None]
  - HERPES ZOSTER [None]
